FAERS Safety Report 4893046-0 (Version None)
Quarter: 2005Q4

REPORT INFORMATION
  Report Type: 
  Country: None (occurrence: None)
  Receive Date: 20051223
  Receipt Date: 20051012
  Transmission Date: 20060501
  Serious: Yes (Hospitalization, Other)
  Sender: FDA-Public Use
  Company Number: 218587

PATIENT
  Age: 70 Year
  Sex: Male

DRUGS (5)
  1. AVASTIN [Suspect]
     Indication: COLORECTAL CANCER METASTATIC
     Dosage: 7.5 MG/KG,Q3W
     Dates: start: 20050913
  2. XELODA [Suspect]
     Indication: COLORECTAL CANCER METASTATIC
  3. OXALIPLATIN(OXALIPLATIN) [Suspect]
     Indication: COLORECTAL CANCER METASTATIC
  4. DOLASETRON (DOLASETRON MESYLATE) [Concomitant]
  5. BENADRYL [Concomitant]

REACTIONS (1)
  - GASTRIC ULCER PERFORATION [None]
